FAERS Safety Report 8113457-X (Version None)
Quarter: 2012Q1

REPORT INFORMATION
  Report Type: 
  Country: None (occurrence: None)
  Receive Date: 20120203
  Receipt Date: 20120130
  Transmission Date: 20120608
  Serious: Yes (Other)
  Sender: FDA-Public Use
  Company Number: US-PFIZER INC-2012026220

PATIENT
  Sex: Male

DRUGS (6)
  1. FLOMAX [Concomitant]
  2. BENICAR [Concomitant]
  3. LANTUS [Concomitant]
  4. ACTOS [Concomitant]
  5. VIAGRA [Suspect]
     Indication: SEXUAL DYSFUNCTION
     Dosage: 100 UNK, 1/2 - 1 TABLET
     Route: 048
  6. LASIX [Concomitant]

REACTIONS (1)
  - CEREBROVASCULAR ACCIDENT [None]
